FAERS Safety Report 6275395-7 (Version None)
Quarter: 2009Q3

REPORT INFORMATION
  Report Type: 
  Country: None (occurrence: None)
  Receive Date: 20090721
  Receipt Date: 20090710
  Transmission Date: 20100115
  Serious: Yes (Hospitalization)
  Sender: FDA-Public Use
  Company Number: US-JNJFOC-20090400061

PATIENT
  Sex: Female
  Weight: 41 kg

DRUGS (3)
  1. REMICADE [Suspect]
     Dosage: 3 TOTAL DOSES ADMINISTERED
     Route: 042
  2. REMICADE [Suspect]
     Indication: COLITIS ULCERATIVE
     Route: 042
  3. COLAZAL [Concomitant]
     Indication: COLITIS ULCERATIVE

REACTIONS (2)
  - CARDIAC FAILURE CONGESTIVE [None]
  - CARDIOMYOPATHY [None]
